FAERS Safety Report 20956977 (Version 1)
Quarter: 2022Q2

REPORT INFORMATION
  Report Type: Spontaneous
  Country: PL (occurrence: PL)
  Receive Date: 20220614
  Receipt Date: 20220614
  Transmission Date: 20220720
  Serious: Yes (Death, Hospitalization)
  Sender: FDA-Public Use
  Company Number: PL-BAYER-2022P004667

PATIENT
  Age: 75 Year
  Sex: Female
  Weight: 68 kg

DRUGS (2)
  1. ULTRAVIST [Suspect]
     Active Substance: IOPROMIDE
     Indication: Computerised tomogram thorax
     Dosage: UNK
     Route: 042
     Dates: start: 20220606
  2. ULTRAVIST [Suspect]
     Active Substance: IOPROMIDE
     Indication: Computerised tomogram abdomen

REACTIONS (6)
  - Vomiting [Fatal]
  - Unresponsive to stimuli [Fatal]
  - Cyanosis [Fatal]
  - Pulse absent [Fatal]
  - Carotid pulse decreased [Fatal]
  - Blood pressure immeasurable [Fatal]

NARRATIVE: CASE EVENT DATE: 20220606
